FAERS Safety Report 6035641-1 (Version None)
Quarter: 2009Q1

REPORT INFORMATION
  Report Type: 
  Country: None (occurrence: None)
  Receive Date: 20090113
  Receipt Date: 20090107
  Transmission Date: 20090719
  Serious: Yes (Hospitalization, Other)
  Sender: FDA-Public Use
  Company Number: PHHY2008JP27827

PATIENT
  Sex: Female
  Weight: 55 kg

DRUGS (5)
  1. TEGRETOL [Suspect]
     Indication: TRIGEMINAL NEURALGIA
     Dosage: 500 MG
     Route: 048
  2. FLUTIDE [Concomitant]
     Indication: ASTHMA
     Dosage: 2 DF
     Dates: start: 20071201
  3. KIPRES [Concomitant]
     Indication: ASTHMA
     Dosage: 10 MG
     Route: 048
     Dates: start: 20071201, end: 20080714
  4. HOKUNALIN [Concomitant]
     Indication: ASTHMA
     Dosage: 2 MG
     Route: 062
     Dates: start: 20071201, end: 20080414
  5. VITAMIN B-12 [Concomitant]
     Route: 042

REACTIONS (8)
  - ANAEMIA [None]
  - ANAEMIA MEGALOBLASTIC [None]
  - ASTHMA [None]
  - BLOOD LACTATE DEHYDROGENASE INCREASED [None]
  - DUODENAL POLYP [None]
  - DYSPNOEA [None]
  - GASTRIC POLYPS [None]
  - GASTRITIS ATROPHIC [None]
